FAERS Safety Report 18527449 (Version 1)
Quarter: 2020Q4

REPORT INFORMATION
  Report Type: Spontaneous
  Country: IN (occurrence: IN)
  Receive Date: 20201120
  Receipt Date: 20201120
  Transmission Date: 20210114
  Serious: Yes (Hospitalization, Other)
  Sender: FDA-Public Use
  Company Number: IN-MICRO LABS LIMITED-ML2020-03443

PATIENT
  Age: 24 Year
  Sex: Male

DRUGS (1)
  1. DICLOFENAC [Suspect]
     Active Substance: DICLOFENAC
     Indication: ANKYLOSING SPONDYLITIS
     Dosage: 150 MG IN THREE DIVIDED DOSES WAS CONTINUED WITH AN EXERCISE REGIMEN.

REACTIONS (5)
  - Pulmonary oedema [Unknown]
  - Left ventricular dysfunction [Unknown]
  - End stage renal disease [Unknown]
  - Renal atrophy [Unknown]
  - Cardiomyopathy [Unknown]
